FAERS Safety Report 8315783-8 (Version None)
Quarter: 2012Q2

REPORT INFORMATION
  Report Type: 
  Country: None (occurrence: None)
  Receive Date: 20120426
  Receipt Date: 20120413
  Transmission Date: 20120825
  Serious: Yes (Hospitalization)
  Sender: FDA-Public Use
  Company Number: ES-MYLANLABS-2012S1007998

PATIENT
  Age: 78 Year
  Sex: Male

DRUGS (6)
  1. ACYCLOVIR [Suspect]
     Dosage: 200MG EVERY 24H, REDUCED FROM 400MG (PRESCRIBED)
     Route: 048
  2. ACYCLOVIR [Suspect]
     Dosage: 400MG EVERY 8H (INCORRECT DOSAGE)
     Route: 048
  3. ACYCLOVIR [Suspect]
     Indication: SKIN LESION
     Dosage: 400MG, THEN SUBSEQUENT DOSES OF 200MG EVERY 24H (PRESCRIBED)
     Route: 048
  4. ACYCLOVIR [Suspect]
     Indication: PAIN
     Dosage: 400MG, THEN SUBSEQUENT DOSES OF 200MG EVERY 24H (PRESCRIBED)
     Route: 048
  5. ACYCLOVIR [Suspect]
     Dosage: 400MG EVERY 8H (INCORRECT DOSAGE)
     Route: 048
  6. ACYCLOVIR [Suspect]
     Dosage: 200MG EVERY 24H, REDUCED FROM 400MG (PRESCRIBED)
     Route: 048

REACTIONS (4)
  - ATAXIA [None]
  - INCORRECT DOSE ADMINISTERED [None]
  - APHASIA [None]
  - HALLUCINATION, VISUAL [None]
